FAERS Safety Report 10209650 (Version 1)
Quarter: 2014Q2

REPORT INFORMATION
  Report Type: Spontaneous
  Country: US (occurrence: US)
  Receive Date: 20140602
  Receipt Date: 20140602
  Transmission Date: 20141212
  Serious: Yes (Hospitalization)
  Sender: FDA-Public Use
  Company Number: US-BIOGENIDEC-2014BI051146

PATIENT
  Age: 46 Year
  Sex: Female

DRUGS (5)
  1. AVONEX [Suspect]
     Indication: PRODUCT USED FOR UNKNOWN INDICATION
     Route: 030
     Dates: start: 201211
  2. MTX [Concomitant]
  3. ALBUTEROL [Concomitant]
  4. PROZAC [Concomitant]
  5. FOLIC ACID [Concomitant]

REACTIONS (1)
  - Cerebrovascular accident [Unknown]
